FAERS Safety Report 13831202 (Version 2)
Quarter: 2017Q3

REPORT INFORMATION
  Report Type: Report from Study
  Country: CO (occurrence: CO)
  Receive Date: 20170803
  Receipt Date: 20170818
  Transmission Date: 20171127
  Serious: Yes (Other)
  Sender: FDA-Public Use
  Company Number: PHHY2017CO112952

PATIENT
  Age: 54 Year
  Sex: Female
  Weight: 52 kg

DRUGS (1)
  1. AFINITOR [Suspect]
     Active Substance: EVEROLIMUS
     Indication: BREAST CANCER
     Dosage: 5 MG, QD
     Route: 048
     Dates: start: 20170713

REACTIONS (6)
  - Arthralgia [Unknown]
  - Bone pain [Unknown]
  - Urinary tract infection [Unknown]
  - Gait inability [Unknown]
  - Dysuria [Unknown]
  - Groin pain [Unknown]

NARRATIVE: CASE EVENT DATE: 20170713
